FAERS Safety Report 5343590-7 (Version None)
Quarter: 2007Q2

REPORT INFORMATION
  Report Type: 
  Country: None (occurrence: None)
  Receive Date: 20070531
  Receipt Date: 20070516
  Transmission Date: 20071010
  Serious: Yes (Other)
  Sender: FDA-Public Use
  Company Number: 07H-066-0312619-00

PATIENT
  Age: 35 Year
  Sex: Female

DRUGS (5)
  1. PROPOFOL 1% INJECTABLE EMULSION 10 MG/ML (PROPOFOL) (PROPOFOL) [Suspect]
     Indication: METABOLIC DISORDER
     Dosage: 25-30 ML/H, INFUSION
  2. PROPOFOL 1% INJECTABLE EMULSION 10 MG/ML (PROPOFOL) (PROPOFOL) [Suspect]
     Indication: NERVOUS SYSTEM DISORDER
     Dosage: 25-30 ML/H, INFUSION
  3. PROPOFOL 1% INJECTABLE EMULSION 10 MG/ML (PROPOFOL) (PROPOFOL) [Suspect]
     Indication: SEDATIVE THERAPY
     Dosage: 25-30 ML/H, INFUSION
  4. REMIFENTANIL (REMIFENTANIL) [Concomitant]
  5. VASOPRESSORS [Concomitant]

REACTIONS (1)
  - PROPOFOL INFUSION SYNDROME [None]
